FAERS Safety Report 5977793-5 (Version None)
Quarter: 2008Q4

REPORT INFORMATION
  Report Type: 
  Country: None (occurrence: None)
  Receive Date: 20081203
  Receipt Date: 20081125
  Transmission Date: 20090506
  Serious: Yes (Hospitalization)
  Sender: FDA-Public Use
  Company Number: US-GILEAD-2008-0019220

PATIENT
  Sex: Female

DRUGS (3)
  1. LETAIRIS [Suspect]
     Indication: PULMONARY HYPERTENSION
  2. VENTAVIS [Concomitant]
  3. LORTAB [Concomitant]

REACTIONS (3)
  - DIARRHOEA [None]
  - LIVER FUNCTION TEST ABNORMAL [None]
  - PRESYNCOPE [None]
